FAERS Safety Report 20821839 (Version 1)
Quarter: 2022Q2

REPORT INFORMATION
  Report Type: Spontaneous
  Country: US (occurrence: None)
  Receive Date: 20220512
  Receipt Date: 20220512
  Transmission Date: 20220720
  Serious: Yes (Hospitalization)
  Sender: FDA-Public Use
  Company Number: None

PATIENT
  Age: 68 Year
  Sex: Male

DRUGS (1)
  1. ABIRATERONE [Suspect]
     Active Substance: ABIRATERONE
     Dosage: 1000MG DAILY ORAL??DATE USE: NOT STARTED
     Route: 048

REACTIONS (9)
  - Gastric banding [None]
  - Surgical procedure repeated [None]
  - Ileus [None]
  - Hernia [None]
  - Device related infection [None]
  - Weight decreased [None]
  - Diarrhoea [None]
  - Dehydration [None]
  - Asthenia [None]

NARRATIVE: CASE EVENT DATE: 20220425
